FAERS Safety Report 5977649-8 (Version None)
Quarter: 2008Q4

REPORT INFORMATION
  Report Type: 
  Country: None (occurrence: None)
  Receive Date: 20081125
  Receipt Date: 20081120
  Transmission Date: 20090506
  Serious: Yes (Hospitalization)
  Sender: FDA-Public Use
  Company Number: US023163

PATIENT
  Age: 47 Year
  Sex: Female
  Weight: 85 kg

DRUGS (3)
  1. BENDAMUSTINE HCL [Suspect]
     Indication: NON-HODGKIN'S LYMPHOMA
     Dosage: 50 MG/M2 INTRAVENOUS
     Route: 042
     Dates: start: 20080218, end: 20080218
  2. VELCADE [Suspect]
     Indication: NON-HODGKIN'S LYMPHOMA
     Dosage: 1.6 MG/M2 INTRAVENOUS
     Route: 042
     Dates: start: 20080218, end: 20080310
  3. RITUXIMAB [Concomitant]

REACTIONS (4)
  - DISEASE PROGRESSION [None]
  - HYPERCALCAEMIA [None]
  - NON-HODGKIN'S LYMPHOMA [None]
  - THROMBOCYTOPENIA [None]
